FAERS Safety Report 8243150-4 (Version None)
Quarter: 2012Q1

REPORT INFORMATION
  Report Type: 
  Country: None (occurrence: None)
  Receive Date: 20120329
  Receipt Date: 20120314
  Transmission Date: 20120608
  Serious: No
  Sender: FDA-Public Use
  Company Number: US-ENDO PHARMACEUTICALS INC.-OPER20120398

PATIENT
  Sex: Female

DRUGS (2)
  1. OPANA ER [Suspect]
     Indication: PAIN
     Route: 048
     Dates: end: 20120201
  2. OPANA ER [Suspect]
     Route: 048
     Dates: start: 20120304

REACTIONS (3)
  - WITHDRAWAL SYNDROME [None]
  - DRUG EFFECT DELAYED [None]
  - INAPPROPRIATE SCHEDULE OF DRUG ADMINISTRATION [None]
